FAERS Safety Report 9636016 (Version 2)
Quarter: 2013Q4

REPORT INFORMATION
  Report Type: Spontaneous
  Country: GB (occurrence: GB)
  Receive Date: 20131021
  Receipt Date: 20131021
  Transmission Date: 20140711
  Serious: Yes (Other)
  Sender: FDA-Public Use
  Company Number: GB-WATSON-2012-23589

PATIENT
  Sex: Male

DRUGS (2)
  1. NICOTINE (UNKNOWN) [Suspect]
     Indication: PRODUCT USED FOR UNKNOWN INDICATION
     Dosage: UNK
     Route: 062
  2. NICOTINE (UNKNOWN) [Suspect]
     Dosage: UNK
     Route: 002

REACTIONS (3)
  - Myocardial infarction [Unknown]
  - Headache [Unknown]
  - Rash [Unknown]
